FAERS Safety Report 9562091 (Version 3)
Quarter: 2013Q4

REPORT INFORMATION
  Report Type: Spontaneous
  Country: FR (occurrence: FR)
  Receive Date: 20130927
  Receipt Date: 20131226
  Transmission Date: 20140711
  Serious: Yes (Death, Life-Threatening, Hospitalization)
  Sender: FDA-Public Use
  Company Number: FR-PFIZER INC-2013271838

PATIENT
  Age: 51 Year
  Sex: Female

DRUGS (2)
  1. FLUOROURACILE PFIZER [Suspect]
     Indication: ANAL CANCER
     Dosage: 6750 MG (750 MG/M2 ON DAY 1 AND 2, THEN 2250 MG/M2 ON DAY 3, BY CONTINUOUS INFUSION), CYCLIC
     Route: 042
     Dates: start: 20130506, end: 20130619
  2. AMETYCINE [Suspect]
     Indication: ANAL CANCER
     Dosage: 21.6 MG (12 MG/M2 ON DAY 1), CYCLIC
     Route: 042
     Dates: start: 20130506, end: 20130617

REACTIONS (2)
  - Pulmonary veno-occlusive disease [Fatal]
  - Dyspnoea [Not Recovered/Not Resolved]
